FAERS Safety Report 9783095 (Version 1)
Quarter: 2013Q4

REPORT INFORMATION
  Report Type: Spontaneous
  Country: US (occurrence: US)
  Receive Date: 20131226
  Receipt Date: 20131226
  Transmission Date: 20140711
  Serious: No
  Sender: FDA-Public Use
  Company Number: US-JNJFOC-20131210179

PATIENT
  Sex: Female
  Weight: 47.63 kg

DRUGS (2)
  1. SANDOZ FENTANYL TRANSDERMAL SYSTEM [Suspect]
     Indication: INTERVERTEBRAL DISC DEGENERATION
     Dosage: NDC 0781-7242-55
     Route: 062
     Dates: start: 2013
  2. SANDOZ FENTANYL TRANSDERMAL SYSTEM [Suspect]
     Indication: INTERVERTEBRAL DISC DEGENERATION
     Dosage: 12.5 UG/HR PATCH (NDC 0781-7240-55) WAS ADDED, ALONG WITH 50 UG/HR TO TITRATE THE DOSE TO 62.5 UG/HR
     Route: 062
     Dates: start: 2013

REACTIONS (6)
  - Fatigue [Unknown]
  - Wrong technique in drug usage process [Not Recovered/Not Resolved]
  - Application site rash [Not Recovered/Not Resolved]
  - Product quality issue [Unknown]
  - Wrong technique in drug usage process [Unknown]
  - Product quality issue [Unknown]
